FAERS Safety Report 9461930 (Version 1)
Quarter: 2013Q3

REPORT INFORMATION
  Report Type: Report from Study
  Country: CO (occurrence: CO)
  Receive Date: 20130816
  Receipt Date: 20130816
  Transmission Date: 20140515
  Serious: Yes (Death)
  Sender: FDA-Public Use
  Company Number: CO-ABBOTT-13P-036-1133830-00

PATIENT
  Age: 72 Year
  Sex: Male

DRUGS (1)
  1. ZEMPLAR [Suspect]
     Indication: HYPERPARATHYROIDISM SECONDARY
     Dosage: 4 WITH DIALYSIS
     Route: 042
     Dates: start: 20130331

REACTIONS (1)
  - Thrombosis mesenteric vessel [Fatal]
